FAERS Safety Report 9837510 (Version 1)
Quarter: 2014Q1

REPORT INFORMATION
  Report Type: Spontaneous
  Country: CH (occurrence: CH)
  Receive Date: 20140123
  Receipt Date: 20140123
  Transmission Date: 20141002
  Serious: Yes (Other)
  Sender: FDA-Public Use
  Company Number: PHHY2014CH005436

PATIENT
  Sex: Male
  Weight: 60 kg

DRUGS (8)
  1. RITALIN LA [Suspect]
     Indication: ABNORMAL BEHAVIOUR
     Dosage: 20 MG, QD
     Route: 048
  2. RITALIN LA [Suspect]
     Indication: EMOTIONAL DISORDER
  3. SERETIDE [Suspect]
     Indication: ASTHMA
     Dosage: 1 DF, BID
     Route: 055
  4. SINGULAIR [Concomitant]
     Route: 048
  5. VENTOLINE [Concomitant]
     Route: 055
  6. AMLODIPINE [Concomitant]
     Route: 048
  7. ENATEC [Concomitant]
     Route: 048
  8. OMEPRAZOLE [Concomitant]
     Route: 048

REACTIONS (1)
  - Hypoglycaemia [Unknown]
